FAERS Safety Report 8602032-6 (Version None)
Quarter: 2012Q3

REPORT INFORMATION
  Report Type: 
  Country: None (occurrence: None)
  Receive Date: 20120817
  Receipt Date: 20120807
  Transmission Date: 20120928
  Serious: Yes (Hospitalization)
  Sender: FDA-Public Use
  Company Number: FR-PFIZER INC-2012191494

PATIENT
  Age: 80 Year
  Sex: Male

DRUGS (7)
  1. PANTOPRAZOLE SODIUM [Suspect]
     Dosage: 20 MG, 1X/DAY
     Route: 048
     Dates: end: 20120101
  2. METFORMIN HCL [Concomitant]
  3. CIPRALAN [Concomitant]
  4. PANTOPRAZOLE SODIUM [Suspect]
     Dosage: UNK
     Dates: start: 20120101
  5. ASPIRIN [Concomitant]
  6. VALSARTAN  AND HYDROCHLOROTHIAZIDE [Suspect]
     Dosage: 1 DF, 1X/DAY
     Route: 048
  7. ATORVASTATIN [Suspect]
     Indication: HYPERCHOLESTEROLAEMIA
     Dosage: 80 MG, 1X/DAY
     Route: 048
     Dates: start: 20120228, end: 20120306

REACTIONS (2)
  - MYALGIA [None]
  - BLOOD CREATINE PHOSPHOKINASE INCREASED [None]
